FAERS Safety Report 6547023-4 (Version None)
Quarter: 2010Q1

REPORT INFORMATION
  Report Type: 
  Country: None (occurrence: None)
  Receive Date: 20100122
  Receipt Date: 20100120
  Transmission Date: 20100710
  Serious: Yes (Hospitalization)
  Sender: FDA-Public Use
  Company Number: Z0001980A

PATIENT
  Age: 79 Year
  Sex: Male
  Weight: 88 kg

DRUGS (6)
  1. PAZOPANIB [Suspect]
     Indication: RENAL CELL CARCINOMA
     Dosage: 800MG PER DAY
     Route: 048
     Dates: start: 20090804
  2. NEXIUM [Concomitant]
     Indication: PROPHYLAXIS
     Dosage: 40MG PER DAY
     Route: 048
     Dates: start: 20080101, end: 20090113
  3. LIQUID DIET [Concomitant]
     Route: 048
     Dates: start: 20091012, end: 20091014
  4. AMBIEN [Concomitant]
     Indication: PROPHYLAXIS
     Dosage: 5MG PER DAY
     Route: 048
     Dates: start: 20091013, end: 20091013
  5. NORMAL SALINE [Concomitant]
     Indication: PROPHYLAXIS
     Dosage: 2L TWICE PER DAY
     Route: 042
     Dates: start: 20091012, end: 20091012
  6. NORMAL SALINE [Concomitant]
     Dosage: 2L TWICE PER DAY
     Route: 042
     Dates: start: 20091013, end: 20091013

REACTIONS (3)
  - DUODENAL ULCER [None]
  - GASTRITIS [None]
  - SMALL INTESTINAL HAEMORRHAGE [None]
